FAERS Safety Report 4359986-6 (Version None)
Quarter: 2004Q2

REPORT INFORMATION
  Report Type: 
  Country: None (occurrence: None)
  Receive Date: 20040513
  Receipt Date: 20040507
  Transmission Date: 20050107
  Serious: Yes (Other)
  Sender: FDA-Public Use
  Company Number: 2004210437US

PATIENT
  Age: 63 Year
  Sex: Female

DRUGS (7)
  1. CELEBREX [Suspect]
     Indication: ARTHRALGIA
     Dosage: 100 MG, QD, ORAL
     Route: 048
     Dates: start: 20031101
  2. COZAAR [Concomitant]
  3. PEPCID [Concomitant]
  4. CELEXA [Concomitant]
  5. TIMOPTIC [Concomitant]
  6. LASIX [Concomitant]
  7. ASPIRIN [Concomitant]

REACTIONS (1)
  - HAEMORRHAGE [None]
